FAERS Safety Report 11010619 (Version 5)
Quarter: 2017Q4

REPORT INFORMATION
  Report Type: Spontaneous
  Country: US (occurrence: US)
  Receive Date: 20150410
  Receipt Date: 20171020
  Transmission Date: 20180320
  Serious: Yes (Hospitalization, Other)
  Sender: FDA-Public Use
  Company Number: US-BAUSCH-BL-2015-010846

PATIENT
  Age: 73 Year
  Sex: Female
  Weight: 58.97 kg

DRUGS (10)
  1. XALATAN [Suspect]
     Active Substance: LATANOPROST
     Indication: GLAUCOMA
     Dosage: APPROXIMATELY 2003, ONCE IN EVENING
     Route: 047
     Dates: start: 2003
  2. XALATAN [Suspect]
     Active Substance: LATANOPROST
     Dosage: STARTED AFTER 2007 OR 2008?1 DROP DAILY IN EACH EYE
     Route: 047
  3. TIMOLOL MALEATE. [Suspect]
     Active Substance: TIMOLOL MALEATE
     Indication: PRODUCT USED FOR UNKNOWN INDICATION
     Dosage: STARTED IN THE PERIOD OF 2005 AND 2006
     Route: 047
     Dates: end: 2006
  4. TIMOLOL MALEATE. [Suspect]
     Active Substance: TIMOLOL MALEATE
     Dosage: IN 2007 OR 2008 AND STOPPED IN 2009 OR 2010
     Route: 065
  5. LOSARTAN. [Concomitant]
     Active Substance: LOSARTAN
     Indication: PRODUCT USED FOR UNKNOWN INDICATION
  6. TRUSOPT [Suspect]
     Active Substance: DORZOLAMIDE HYDROCHLORIDE
     Indication: PRODUCT USED FOR UNKNOWN INDICATION
     Dosage: PERIOD OF 2005 AND 2006
     Route: 047
  7. TRUSOPT [Suspect]
     Active Substance: DORZOLAMIDE HYDROCHLORIDE
     Dosage: STARTED IN 2006 OR 2007
     Route: 047
     Dates: end: 2016
  8. AZOPT [Suspect]
     Active Substance: BRINZOLAMIDE
     Indication: PRODUCT USED FOR UNKNOWN INDICATION
     Route: 047
  9. AMLODIPINE [Concomitant]
     Active Substance: AMLODIPINE BESYLATE
     Indication: PRODUCT USED FOR UNKNOWN INDICATION
     Dates: start: 2014
  10. COZAAR [Concomitant]
     Active Substance: LOSARTAN POTASSIUM
     Indication: PRODUCT USED FOR UNKNOWN INDICATION

REACTIONS (27)
  - Reading disorder [Recovering/Resolving]
  - Weight decreased [Recovered/Resolved]
  - Growth of eyelashes [Recovered/Resolved]
  - Thyroid disorder [Not Recovered/Not Resolved]
  - Dizziness [Not Recovered/Not Resolved]
  - Hypersensitivity [Unknown]
  - Tinnitus [Not Recovered/Not Resolved]
  - Thinking abnormal [Recovered/Resolved]
  - Visual acuity reduced [Recovering/Resolving]
  - Hyperthyroidism [Unknown]
  - Chest discomfort [Not Recovered/Not Resolved]
  - Body height decreased [Not Recovered/Not Resolved]
  - Fear [Recovered/Resolved]
  - Influenza [Not Recovered/Not Resolved]
  - Eyelid disorder [Recovered/Resolved]
  - Intraocular pressure increased [Recovering/Resolving]
  - Cataract [Not Recovered/Not Resolved]
  - Feeling abnormal [Recovered/Resolved]
  - Confusional state [Not Recovered/Not Resolved]
  - Alopecia [Not Recovered/Not Resolved]
  - Medication error [Recovered/Resolved]
  - Dysgraphia [Recovered/Resolved]
  - Eyelid irritation [Not Recovered/Not Resolved]
  - Paralysis [Recovered/Resolved]
  - Tooth extraction [Not Recovered/Not Resolved]
  - Emphysema [Not Recovered/Not Resolved]
  - Dyspnoea [Not Recovered/Not Resolved]

NARRATIVE: CASE EVENT DATE: 2006
